FAERS Safety Report 10457352 (Version 3)
Quarter: 2014Q4

REPORT INFORMATION
  Report Type: Report from Study
  Country: AU (occurrence: AU)
  Receive Date: 20140916
  Receipt Date: 20141022
  Transmission Date: 20150528
  Serious: Yes (Hospitalization, Other)
  Sender: FDA-Public Use
  Company Number: AU-GLAXOSMITHKLINE-Z0020108B

PATIENT
  Age: 80 Year
  Sex: Female
  Weight: 56.9 kg

DRUGS (1)
  1. OFATUMUMAB [Suspect]
     Active Substance: OFATUMUMAB
     Indication: CHRONIC LYMPHOCYTIC LEUKAEMIA
     Route: 042
     Dates: start: 20120124, end: 20120515

REACTIONS (1)
  - Femoral neck fracture [Not Recovered/Not Resolved]

NARRATIVE: CASE EVENT DATE: 20140910
